FAERS Safety Report 12498799 (Version 1)
Quarter: 2016Q2

REPORT INFORMATION
  Report Type: Spontaneous
  Country: JP (occurrence: JP)
  Receive Date: 20160627
  Receipt Date: 20160627
  Transmission Date: 20160815
  Serious: Yes (Death, Hospitalization)
  Sender: FDA-Public Use
  Company Number: JP-CIPLA LTD.-2016JP07332

PATIENT

DRUGS (3)
  1. TS-1 [Suspect]
     Active Substance: GIMERACIL\OTERACIL\TEGAFUR
     Indication: SQUAMOUS CELL CARCINOMA OF LUNG
     Dosage: 40 MG/M2, BID ON DAYS 1-14, OF A 28-DAY CYCLE, FOR FOUR CYCLES
     Route: 048
  2. TS-1 [Suspect]
     Active Substance: GIMERACIL\OTERACIL\TEGAFUR
     Dosage: UNK, MAINTAINANCE DOSE
     Route: 065
  3. CARBOPLATIN. [Suspect]
     Active Substance: CARBOPLATIN
     Indication: SQUAMOUS CELL CARCINOMA OF LUNG
     Dosage: AUC 5, ON DAY 1, EVERY 28 DAYS FOR FOUR CYCLES
     Route: 042

REACTIONS (1)
  - Pneumonia bacterial [Fatal]
